FAERS Safety Report 9115736 (Version 1)
Quarter: 2013Q1

REPORT INFORMATION
  Report Type: Spontaneous
  Country: US (occurrence: None)
  Receive Date: 20130221
  Receipt Date: 20130221
  Transmission Date: 20140127
  Serious: Yes (Other)
  Sender: FDA-Public Use
  Company Number: None

PATIENT
  Age: 70 Year
  Sex: Female
  Weight: 122.47 kg

DRUGS (1)
  1. ZOLPIDEM TARTRATE [Suspect]
     Indication: SLEEP APNOEA SYNDROME
     Dosage: 5 MG 1-PM USED FOR SEVERAL YEARS

REACTIONS (3)
  - Fatigue [None]
  - Somnambulism [None]
  - Road traffic accident [None]
